FAERS Safety Report 8762750 (Version 2)
Quarter: 2012Q4

REPORT INFORMATION
  Report Type: 
  Country: US (occurrence: US)
  Receive Date: 20120828
  Receipt Date: 20121004
  Transmission Date: 20130627
  Serious: Yes (Hospitalization)
  Sender: FDA-Public Use
  Company Number: US-JNJFOC-20120809975

PATIENT
  Age: 86 Year
  Sex: Male

DRUGS (9)
  1. XARELTO [Suspect]
     Indication: CEREBROVASCULAR ACCIDENT PROPHYLAXIS
     Dosage: started 24-JUL-2012 or 25-JUL-2012
     Route: 048
     Dates: start: 201207, end: 20120818
  2. XARELTO [Suspect]
     Indication: ATRIAL FIBRILLATION
     Dosage: started 24-JUL-2012 or 25-JUL-2012
     Route: 048
     Dates: start: 201207, end: 20120818
  3. REGLAN [Suspect]
     Indication: PRODUCT USED FOR UNKNOWN INDICATION
     Dosage: started 24-JUL-2012 or 25-JUL-2012
     Dates: start: 201207, end: 201208
  4. JANUMET [Concomitant]
     Indication: DIABETES MELLITUS
     Route: 048
  5. ^BLOOD PRESSURE^ MEDICATION [Concomitant]
     Indication: BLOOD PRESSURE
     Route: 048
  6. METOLAZONE [Concomitant]
     Indication: DIURETIC THERAPY
     Route: 048
  7. BISOPROLOL [Concomitant]
     Indication: HYPERTENSION
     Route: 048
  8. AMARYL [Concomitant]
     Indication: DIABETES MELLITUS
     Route: 048
  9. PRAVACHOL [Concomitant]
     Indication: HYPERTENSION
     Route: 048

REACTIONS (2)
  - Asthenia [Unknown]
  - Cerebrovascular accident [Recovered/Resolved]
